FAERS Safety Report 19964162 (Version 1)
Quarter: 2021Q4

REPORT INFORMATION
  Report Type: Spontaneous
  Country: CO (occurrence: CO)
  Receive Date: 20211018
  Receipt Date: 20211018
  Transmission Date: 20220303
  Serious: Yes (Death, Hospitalization, Other)
  Sender: FDA-Public Use
  Company Number: CO-AMNEAL PHARMACEUTICALS-2021-AMRX-04161

PATIENT
  Age: 27 Year
  Sex: Male

DRUGS (6)
  1. ALBENZA [Suspect]
     Active Substance: ALBENDAZOLE
     Indication: Strongyloidiasis
     Dosage: 400 MILLIGRAM, 1 /DAY
     Route: 065
  2. IVERMECTIN [Suspect]
     Active Substance: IVERMECTIN
     Indication: Strongyloidiasis
     Dosage: 200 MICROGRAM/KILOGRAM
     Route: 065
  3. MESALAMINE [Concomitant]
     Active Substance: MESALAMINE
     Indication: Product used for unknown indication
     Dosage: 500 MILLIGRAM, EVERY 12HR
     Route: 048
  4. VANCOMYCIN [Concomitant]
     Active Substance: VANCOMYCIN
     Indication: Product used for unknown indication
     Route: 065
  5. PIPERACILLIN AND TAZOBACTAM [Concomitant]
     Active Substance: PIPERACILLIN SODIUM\TAZOBACTAM SODIUM
     Indication: Product used for unknown indication
     Route: 065
  6. NOREPINEPHRINE [Concomitant]
     Active Substance: NOREPINEPHRINE
     Indication: Product used for unknown indication
     Route: 065

REACTIONS (1)
  - Drug ineffective [Fatal]
